FAERS Safety Report 18103879 (Version 2)
Quarter: 2021Q2

REPORT INFORMATION
  Report Type: Spontaneous
  Country: HK (occurrence: HK)
  Receive Date: 20200803
  Receipt Date: 20210628
  Transmission Date: 20210717
  Serious: Yes (Life-Threatening, Hospitalization)
  Sender: FDA-Public Use
  Company Number: HK-TEVA-2020-HK-1809854

PATIENT
  Age: 77 Year
  Sex: Female

DRUGS (4)
  1. ATROPINE. [Suspect]
     Active Substance: ATROPINE
     Indication: BRADYCARDIA
     Route: 065
  2. DOPAMINE [Suspect]
     Active Substance: DOPAMINE HYDROCHLORIDE
     Indication: BRADYCARDIA
     Dosage: FORMULATION: INFUSION
     Route: 065
  3. LISINOPRIL. [Suspect]
     Active Substance: LISINOPRIL
     Indication: HYPERTENSION
     Route: 065
  4. METOPROLOL. [Suspect]
     Active Substance: METOPROLOL
     Indication: HEART RATE ABNORMAL
     Route: 065

REACTIONS (2)
  - BRASH syndrome [Recovered/Resolved]
  - Treatment failure [Unknown]
